FAERS Safety Report 5163450-4 (Version None)
Quarter: 2006Q4

REPORT INFORMATION
  Report Type: 
  Country: None (occurrence: None)
  Receive Date: 20061128
  Receipt Date: 20061128
  Transmission Date: 20070319
  Serious: Yes (Other)
  Sender: FDA-Public Use
  Company Number: None

PATIENT
  Sex: Female

DRUGS (1)
  1. ADDERALL 20 [Suspect]
     Dosage: 20MG TID
     Dates: start: 20020125

REACTIONS (1)
  - ABDOMINAL PAIN UPPER [None]
